FAERS Safety Report 10235608 (Version 6)
Quarter: 2015Q3

REPORT INFORMATION
  Report Type: Spontaneous
  Country: RU (occurrence: RU)
  Receive Date: 20140613
  Receipt Date: 20150730
  Transmission Date: 20151125
  Serious: Yes (Life-Threatening, Hospitalization, Other)
  Sender: FDA-Public Use
  Company Number: RU-TEVA-485992ISR

PATIENT
  Age: 53 Year
  Sex: Female
  Weight: 98 kg

DRUGS (3)
  1. GEMZAR [Concomitant]
     Active Substance: GEMCITABINE HYDROCHLORIDE
     Indication: PALLIATIVE CARE
     Route: 042
     Dates: start: 20140520, end: 20140520
  2. CISPLATIN-TEVA [Suspect]
     Active Substance: CISPLATIN
     Indication: BREAST CANCER
     Dosage: 1 MG/ML 100ML
     Route: 042
     Dates: start: 20140520
  3. EMEST [Concomitant]
     Indication: VOMITING
     Route: 042
     Dates: start: 20140520, end: 20140528

REACTIONS (9)
  - Acute kidney injury [Recovering/Resolving]
  - Nausea [Recovering/Resolving]
  - Hearing impaired [Unknown]
  - Asthenia [Recovering/Resolving]
  - Oedema [Unknown]
  - Hypoaesthesia [Unknown]
  - Vomiting [Recovering/Resolving]
  - Loss of consciousness [Unknown]
  - Paraesthesia [Unknown]

NARRATIVE: CASE EVENT DATE: 20140522
